FAERS Safety Report 18254645 (Version 1)
Quarter: 2020Q3

REPORT INFORMATION
  Report Type: Spontaneous
  Country: US (occurrence: US)
  Receive Date: 20200911
  Receipt Date: 20200911
  Transmission Date: 20201103
  Serious: Yes (Other)
  Sender: FDA-Public Use
  Company Number: US-AMGEN-USASP2020146236

PATIENT
  Age: 72 Year
  Sex: Female

DRUGS (1)
  1. BLINCYTO [Suspect]
     Active Substance: BLINATUMOMAB
     Indication: ACUTE LYMPHOCYTIC LEUKAEMIA
     Dosage: 28 MICROGRAM, QD
     Route: 065
     Dates: start: 20200904, end: 20200906

REACTIONS (4)
  - Tremor [Unknown]
  - Pyrexia [Recovering/Resolving]
  - Agnosia [Unknown]
  - Aphasia [Unknown]

NARRATIVE: CASE EVENT DATE: 20200905
